FAERS Safety Report 5280746-6 (Version None)
Quarter: 2007Q1

REPORT INFORMATION
  Report Type: 
  Country: None (occurrence: None)
  Receive Date: 20070329
  Receipt Date: 20070318
  Transmission Date: 20070707
  Serious: Yes (Other)
  Sender: FDA-Public Use
  Company Number: PHFR2007GB01090

PATIENT
  Age: 55 Year
  Sex: Female

DRUGS (1)
  1. CLOZARIL [Suspect]
     Dosage: 450MG ONCE/SINGLE
     Route: 048

REACTIONS (4)
  - ACCIDENTAL EXPOSURE [None]
  - CONFUSIONAL STATE [None]
  - SOMNOLENCE [None]
  - VOMITING [None]
